FAERS Safety Report 8312056-4 (Version None)
Quarter: 2012Q2

REPORT INFORMATION
  Report Type: 
  Country: None (occurrence: None)
  Receive Date: 20120425
  Receipt Date: 20120412
  Transmission Date: 20120825
  Serious: Yes (Other)
  Sender: FDA-Public Use
  Company Number: US-ELI_LILLY_AND_COMPANY-US201204005094

PATIENT
  Age: 52 Year
  Sex: Female

DRUGS (5)
  1. CYMBALTA [Suspect]
     Dosage: 60 MG, BID
  2. CYMBALTA [Suspect]
     Indication: FIBROMYALGIA
     Dosage: 120 MG, QD
  3. RANITIDINE [Concomitant]
  4. DYCLONINE [Concomitant]
  5. LANSOPRAZOLE [Concomitant]

REACTIONS (4)
  - DERMATITIS CONTACT [None]
  - BLISTER [None]
  - EXFOLIATIVE RASH [None]
  - DYSPEPSIA [None]
